FAERS Safety Report 15046423 (Version 2)
Quarter: 2018Q3

REPORT INFORMATION
  Report Type: Report from Study
  Country: US (occurrence: US)
  Receive Date: 20180621
  Receipt Date: 20180831
  Transmission Date: 20181010
  Serious: Yes (Hospitalization)
  Sender: FDA-Public Use
  Company Number: US-ACTELION-A-NJ2018-172127

PATIENT
  Age: 17 Year
  Sex: Male
  Weight: 49.43 kg

DRUGS (3)
  1. ADCIRCA [Concomitant]
     Active Substance: TADALAFIL
  2. UPTRAVI [Suspect]
     Active Substance: SELEXIPAG
     Indication: PULMONARY HYPERTENSION
     Dosage: 400 MCG, BID
     Route: 048
  3. TRACLEER [Suspect]
     Active Substance: BOSENTAN
     Indication: PULMONARY HYPERTENSION
     Dosage: 125 MG, BID
     Route: 048

REACTIONS (6)
  - Oedema peripheral [Unknown]
  - Blood albumin decreased [Unknown]
  - Scrotal swelling [Not Recovered/Not Resolved]
  - Pneumonia [Unknown]
  - Blood albumin abnormal [Unknown]
  - Hydrocephalus [Unknown]
